FAERS Safety Report 9975182 (Version 1)
Quarter: 2014Q1

REPORT INFORMATION
  Report Type: Report from Study
  Country: US (occurrence: US)
  Receive Date: 20140306
  Receipt Date: 20140306
  Transmission Date: 20141002
  Serious: No
  Sender: FDA-Public Use
  Company Number: US-ABBVIE-13P-163-1160409-00

PATIENT
  Age: 33 Year
  Sex: Male

DRUGS (2)
  1. HUMIRA [Suspect]
     Indication: PSORIATIC ARTHROPATHY
     Dates: start: 201301, end: 201305
  2. HUMIRA [Suspect]
     Dates: start: 201305

REACTIONS (3)
  - Drug effect decreased [Unknown]
  - Arthralgia [Recovering/Resolving]
  - Pain in extremity [Recovering/Resolving]
